FAERS Safety Report 23300777 (Version 11)
Quarter: 2024Q1

REPORT INFORMATION
  Report Type: Spontaneous
  Country: US (occurrence: US)
  Receive Date: 20231215
  Receipt Date: 20240329
  Transmission Date: 20240409
  Serious: Yes (Hospitalization, Other)
  Sender: FDA-Public Use
  Company Number: US-GLAXOSMITHKLINE-US2023AMR171197

PATIENT

DRUGS (1)
  1. ZEJULA [Suspect]
     Active Substance: NIRAPARIB
     Indication: Metastases to abdominal cavity
     Dosage: 200 MG, QD
     Dates: start: 20231202

REACTIONS (18)
  - Full blood count decreased [Unknown]
  - Gingival bleeding [Unknown]
  - Aspiration bone marrow [Unknown]
  - Contusion [Unknown]
  - Near death experience [Unknown]
  - Surgery [Unknown]
  - Feeling hot [Unknown]
  - Swelling face [Unknown]
  - Pruritus [Recovering/Resolving]
  - Insomnia [Unknown]
  - Hypoaesthesia [Recovering/Resolving]
  - Epistaxis [Unknown]
  - Stomatitis [Unknown]
  - Fatigue [Unknown]
  - Asthenia [Unknown]
  - Nausea [Unknown]
  - Haemoptysis [Unknown]
  - Red blood cell count decreased [Unknown]

NARRATIVE: CASE EVENT DATE: 20231201
